FAERS Safety Report 6733928-8 (Version None)
Quarter: 2010Q2

REPORT INFORMATION
  Report Type: 
  Country: None (occurrence: None)
  Receive Date: 20100520
  Receipt Date: 20100513
  Transmission Date: 20101027
  Serious: Yes (Hospitalization)
  Sender: FDA-Public Use
  Company Number: US-ABBOTT-08P-163-0486378-00

PATIENT
  Sex: Male
  Weight: 103.51 kg

DRUGS (13)
  1. HUMIRA [Suspect]
     Indication: RHEUMATOID ARTHRITIS
     Dates: start: 20081001, end: 20100201
  2. SOMA [Suspect]
     Indication: PAIN
     Dates: end: 20090801
  3. METHADONE [Concomitant]
     Indication: PAIN
     Dates: end: 20081001
  4. METHADONE [Concomitant]
     Dates: end: 20090601
  5. PERCOCET [Concomitant]
     Indication: PAIN
     Dates: end: 20081001
  6. PERCOCET [Concomitant]
     Dates: start: 20090601
  7. VICODIN [Concomitant]
     Indication: DRUG USE FOR UNKNOWN INDICATION
     Dates: end: 20080901
  8. ULTRAM [Concomitant]
     Indication: DRUG USE FOR UNKNOWN INDICATION
     Dates: end: 20080901
  9. OXICODONE [Concomitant]
     Indication: PAIN
     Route: 048
  10. VENTOLIN [Concomitant]
     Indication: DRUG USE FOR UNKNOWN INDICATION
     Route: 055
  11. TRAMADAL [Concomitant]
     Indication: PAIN
  12. METHOTREXATE [Concomitant]
     Indication: RHEUMATOID ARTHRITIS
  13. PREDNISONE [Concomitant]
     Indication: RHEUMATOID ARTHRITIS

REACTIONS (12)
  - AMNESIA [None]
  - ARTHRALGIA [None]
  - BALANCE DISORDER [None]
  - COGNITIVE DISORDER [None]
  - CONFUSIONAL STATE [None]
  - COORDINATION ABNORMAL [None]
  - DIZZINESS [None]
  - HEADACHE [None]
  - HYPERSENSITIVITY [None]
  - MALAISE [None]
  - MENTAL STATUS CHANGES [None]
  - SLEEP DISORDER [None]
